FAERS Safety Report 15260648 (Version 6)
Quarter: 2018Q3

REPORT INFORMATION
  Report Type: Report from Study
  Country: GB (occurrence: GB)
  Receive Date: 20180809
  Receipt Date: 20180907
  Transmission Date: 20181010
  Serious: Yes (Other)
  Sender: FDA-Public Use
  Company Number: PHHY2018GB066102

PATIENT
  Sex: Female

DRUGS (3)
  1. COSENTYX [Suspect]
     Active Substance: SECUKINUMAB
     Indication: PSORIATIC ARTHROPATHY
     Dosage: 300 MG, QW (WEEK O TO WEEK 3 WEEKLY THEREAFTER, 300MG MONTHLY)
     Route: 058
     Dates: start: 20180719
  2. COSENTYX [Suspect]
     Active Substance: SECUKINUMAB
     Dosage: 300 MG, QW (WEEK O TO WEEK 3 WEEKLY THEREAFTER, 300MG MONTHLY)
     Route: 058
  3. METHOTREXATE. [Suspect]
     Active Substance: METHOTREXATE
     Indication: PRODUCT USED FOR UNKNOWN INDICATION
     Route: 058

REACTIONS (4)
  - Malaise [Not Recovered/Not Resolved]
  - Fatigue [Unknown]
  - Drug resistance [Not Recovered/Not Resolved]
  - Lower respiratory tract infection [Unknown]
